FAERS Safety Report 7737995-4 (Version None)
Quarter: 2011Q3

REPORT INFORMATION
  Report Type: 
  Country: None (occurrence: None)
  Receive Date: 20110908
  Receipt Date: 20110829
  Transmission Date: 20111222
  Serious: Yes (Hospitalization)
  Sender: FDA-Public Use
  Company Number: US-BAYER-2011-022152

PATIENT
  Age: 25 Year
  Sex: Female
  Weight: 64.5 kg

DRUGS (4)
  1. AVIANE-28 [Concomitant]
     Dosage: UNK
     Dates: start: 20080101
  2. IBUPROFEN [Concomitant]
     Dosage: UNK
     Dates: start: 19950101
  3. ASCORBIC ACID [Concomitant]
     Dosage: UNK
     Dates: start: 20010101
  4. YAZ [Suspect]
     Indication: CONTRACEPTION
     Dosage: UNK
     Dates: start: 20071007, end: 20090201

REACTIONS (8)
  - EMOTIONAL DISTRESS [None]
  - DYSPNOEA [None]
  - PULMONARY EMBOLISM [None]
  - ABDOMINAL PAIN [None]
  - CHEST DISCOMFORT [None]
  - INJURY [None]
  - PAIN [None]
  - CHEST PAIN [None]
